FAERS Safety Report 10653933 (Version 2)
Quarter: 2015Q2

REPORT INFORMATION
  Report Type: Spontaneous
  Country: US (occurrence: None)
  Receive Date: 20141212
  Receipt Date: 20150416
  Transmission Date: 20150821
  Serious: Yes (Hospitalization, Disabling)
  Sender: FDA-Public Use
  Company Number: 20140802

PATIENT
  Age: 57 Year
  Sex: Male
  Weight: 121.56 kg

DRUGS (2)
  1. ALCOHOL. [Suspect]
     Active Substance: ALCOHOL
     Indication: PRODUCT USED FOR UNKNOWN INDICATION
     Dosage: USED PRIOR TO SHOT
     Route: 062
     Dates: start: 20111115, end: 201112
  2. CYANOCOBALAMIN INJECTION, USP (0031-25) 1000 UG/ML [Suspect]
     Active Substance: CYANOCOBALAMIN
     Indication: PRODUCT USED FOR UNKNOWN INDICATION
     Dates: start: 20111115, end: 201112

REACTIONS (4)
  - Adverse event [None]
  - Musculoskeletal pain [None]
  - Hip arthroplasty [None]
  - Infection [None]

NARRATIVE: CASE EVENT DATE: 201112
